FAERS Safety Report 4359488-7 (Version None)
Quarter: 2004Q2

REPORT INFORMATION
  Report Type: 
  Country: None (occurrence: None)
  Receive Date: 20040512
  Receipt Date: 20040426
  Transmission Date: 20050107
  Serious: Yes (Other)
  Sender: FDA-Public Use
  Company Number: USA040465857

PATIENT
  Age: 79 Year
  Sex: Female
  Weight: 53 kg

DRUGS (2)
  1. FORTEO [Suspect]
     Indication: OSTEOPOROSIS
     Dates: start: 20020101
  2. FOSAMAX [Concomitant]

REACTIONS (7)
  - DIZZINESS [None]
  - EYE ROLLING [None]
  - HALO VISION [None]
  - LOSS OF CONSCIOUSNESS [None]
  - NERVOUSNESS [None]
  - TONGUE DISORDER [None]
  - VISUAL DISTURBANCE [None]
